FAERS Safety Report 8900639 (Version 2)
Quarter: 2013Q2

REPORT INFORMATION
  Report Type: Report from Study
  Country: BR (occurrence: BR)
  Receive Date: 20121109
  Receipt Date: 20130404
  Transmission Date: 20140414
  Serious: Yes (Hospitalization, Other)
  Sender: FDA-Public Use
  Company Number: BR-ROCHE-1151750

PATIENT
  Age: 47 Year
  Sex: Female
  Weight: 70 kg

DRUGS (16)
  1. RITUXIMAB [Suspect]
     Indication: DERMATOMYOSITIS
     Route: 042
     Dates: start: 20100801
  2. RITUXIMAB [Suspect]
     Route: 042
     Dates: start: 20100815
  3. RITUXIMAB [Suspect]
     Route: 042
     Dates: start: 20110303
  4. RITUXIMAB [Suspect]
     Route: 042
     Dates: start: 20110321
  5. RITUXIMAB [Suspect]
     Route: 042
     Dates: start: 20111007
  6. RITUXIMAB [Suspect]
     Route: 042
     Dates: start: 20111018
  7. RITUXIMAB [Suspect]
     Route: 042
     Dates: start: 20120330
  8. RITUXIMAB [Suspect]
     Route: 042
     Dates: start: 20120413
  9. PREDNISONE [Suspect]
     Indication: PRODUCT USED FOR UNKNOWN INDICATION
     Route: 065
  10. AZATIOPRIN [Concomitant]
  11. BONVIVA [Concomitant]
  12. PROTOS [Concomitant]
  13. GABAPENTIN [Concomitant]
  14. ADDERA PLUS [Concomitant]
  15. TYLEX (BRAZIL) [Concomitant]
  16. FLUOXETINE [Concomitant]

REACTIONS (3)
  - Necrosis [Not Recovered/Not Resolved]
  - Immunodeficiency [Not Recovered/Not Resolved]
  - Respiratory tract infection [Unknown]
